FAERS Safety Report 5021524-2 (Version None)
Quarter: 2006Q2

REPORT INFORMATION
  Report Type: 
  Country: None (occurrence: None)
  Receive Date: 20060608
  Receipt Date: 20060602
  Transmission Date: 20061013
  Serious: Yes (Other)
  Sender: FDA-Public Use
  Company Number: JP-BOEHRINGER INGELHEIM PHARMACEUTICALS, INC.-2006-BP-06419YA

PATIENT
  Sex: Male

DRUGS (2)
  1. HARNAL [Suspect]
     Route: 048
  2. LIPITOR [Suspect]
     Route: 048
     Dates: start: 20060301, end: 20060301

REACTIONS (1)
  - DERMATOMYOSITIS [None]
